FAERS Safety Report 9265585 (Version 1)
Quarter: 2013Q2

REPORT INFORMATION
  Report Type: Report from Study
  Country: US (occurrence: US)
  Receive Date: 20130501
  Receipt Date: 20130501
  Transmission Date: 20140414
  Serious: Yes (Hospitalization, Other)
  Sender: FDA-Public Use
  Company Number: US-ABBOTT-13P-163-1080515-00

PATIENT
  Sex: Female
  Weight: 80.81 kg

DRUGS (8)
  1. HUMIRA PEN [Suspect]
     Indication: RHEUMATOID ARTHRITIS
     Route: 058
     Dates: start: 2008, end: 201301
  2. HUMIRA PEN [Suspect]
     Route: 058
     Dates: start: 201303
  3. NEXIUM [Concomitant]
     Indication: OESOPHAGEAL DISORDER
  4. TYLENOL [Concomitant]
     Indication: ARTHRALGIA
  5. UNKNOWN MEDICATION [Concomitant]
     Indication: HYPERTENSION
  6. UNKNOWN MEDICATION [Concomitant]
     Indication: ANXIETY
  7. UNKNOWN MEDICATION [Concomitant]
     Indication: DEPRESSION
  8. UNKNOWN MEDICATION [Concomitant]
     Indication: INSOMNIA

REACTIONS (9)
  - Osteoarthritis [Recovered/Resolved]
  - Arthralgia [Recovered/Resolved]
  - Gait disturbance [Recovered/Resolved]
  - Pain [Recovered/Resolved]
  - Dehydration [Recovered/Resolved]
  - Blood sodium abnormal [Recovered/Resolved]
  - Drug effect incomplete [Not Recovered/Not Resolved]
  - Arthralgia [Not Recovered/Not Resolved]
  - Electrolyte imbalance [Recovered/Resolved]
